FAERS Safety Report 5065970-X (Version None)
Quarter: 2006Q3

REPORT INFORMATION
  Report Type: 
  Country: None (occurrence: None)
  Receive Date: 20060731
  Receipt Date: 20060721
  Transmission Date: 20061208
  Serious: Yes (Hospitalization)
  Sender: FDA-Public Use
  Company Number: FR-BOEHRINGER INGELHEIM PHARMACEUTICALS, INC.-2006-FF-00642FF

PATIENT
  Age: 21 Year
  Sex: Male

DRUGS (5)
  1. MOBIC [Suspect]
     Route: 048
  2. ZINNAT [Concomitant]
     Route: 048
  3. NIFLUGEL [Concomitant]
     Route: 061
  4. FLANID [Concomitant]
     Route: 048
  5. DEXTRARINE PHENYBUTAZONE [Concomitant]
     Route: 061

REACTIONS (3)
  - NEPHRITIS INTERSTITIAL [None]
  - NEPHROGENIC DIABETES INSIPIDUS [None]
  - RENAL FAILURE ACUTE [None]
